FAERS Safety Report 6833935-0 (Version None)
Quarter: 2010Q3

REPORT INFORMATION
  Report Type: 
  Country: None (occurrence: None)
  Receive Date: 20100712
  Receipt Date: 20070406
  Transmission Date: 20110219
  Serious: Yes (Other)
  Sender: FDA-Public Use
  Company Number: US-PFIZER INC-2007028529

PATIENT
  Sex: Female
  Weight: 68 kg

DRUGS (16)
  1. CHANTIX [Suspect]
     Indication: EX-TOBACCO USER
     Dates: start: 20070301
  2. TOPAMAX [Concomitant]
  3. NEURONTIN [Concomitant]
  4. PREDNISONE [Concomitant]
  5. HYDROCHLOROTHIAZIDE [Concomitant]
  6. LISINOPRIL [Concomitant]
  7. EFFEXOR [Concomitant]
  8. LIPITOR [Concomitant]
  9. NEXIUM [Concomitant]
  10. CALCIUM [Concomitant]
  11. CENTRUM [Concomitant]
  12. FENTANYL [Concomitant]
  13. DARIFENACIN [Concomitant]
  14. COSOPT [Concomitant]
     Route: 047
  15. HUMIRA [Concomitant]
  16. NEORAL [Concomitant]

REACTIONS (2)
  - PRURITUS [None]
  - URTICARIA [None]
